FAERS Safety Report 8291019-1 (Version None)
Quarter: 2012Q2

REPORT INFORMATION
  Report Type: 
  Country: None (occurrence: None)
  Receive Date: 20120417
  Receipt Date: 20111121
  Transmission Date: 20120825
  Serious: No
  Sender: FDA-Public Use
  Company Number: US-ASTRAZENECA-2011SE63060

PATIENT
  Age: 79 Year
  Sex: Female

DRUGS (2)
  1. OMEPRAZOLE [Suspect]
     Route: 048
  2. NEXIUM [Suspect]
     Route: 048

REACTIONS (12)
  - SINUS DISORDER [None]
  - ORAL DISCOMFORT [None]
  - NON-CARDIAC CHEST PAIN [None]
  - DYSPHONIA [None]
  - DRUG DOSE OMISSION [None]
  - OROPHARYNGEAL DISCOMFORT [None]
  - THROAT IRRITATION [None]
  - OROPHARYNGEAL PAIN [None]
  - DYSPEPSIA [None]
  - GLAUCOMA [None]
  - ABDOMINAL DISCOMFORT [None]
  - DRUG INEFFECTIVE [None]
